FAERS Safety Report 6791266-1 (Version None)
Quarter: 2010Q2

REPORT INFORMATION
  Report Type: 
  Country: None (occurrence: None)
  Receive Date: 20100624
  Receipt Date: 20100614
  Transmission Date: 20101027
  Serious: Yes (Death)
  Sender: FDA-Public Use
  Company Number: DE-WATSON-2010-08248

PATIENT
  Age: 1 Year
  Sex: Female

DRUGS (1)
  1. FENTANYL [Suspect]
     Indication: ACCIDENTAL EXPOSURE
     Dosage: UNK
     Route: 048

REACTIONS (5)
  - ACCIDENTAL POISONING [None]
  - BRAIN OEDEMA [None]
  - LOSS OF CONSCIOUSNESS [None]
  - PULMONARY OEDEMA [None]
  - VOMITING [None]
